FAERS Safety Report 4460905-2 (Version None)
Quarter: 2004Q3

REPORT INFORMATION
  Report Type: 
  Country: None (occurrence: None)
  Receive Date: 20040928
  Receipt Date: 20040609
  Transmission Date: 20050211
  Serious: No
  Sender: FDA-Public Use
  Company Number: US-GLAXOSMITHKLINE-A0513990A

PATIENT
  Age: 69 Year
  Sex: Female

DRUGS (3)
  1. ADVAIR DISKUS 100/50 [Suspect]
     Dosage: 1PUFF TWICE PER DAY
     Route: 055
  2. BECLOVENT [Suspect]
  3. CLARINEX [Concomitant]

REACTIONS (6)
  - ALOPECIA [None]
  - CUSHINGOID [None]
  - DYSPNOEA [None]
  - MUSCLE CRAMP [None]
  - TACHYCARDIA [None]
  - WEIGHT INCREASED [None]
